FAERS Safety Report 8581051-2 (Version None)
Quarter: 2012Q3

REPORT INFORMATION
  Report Type: 
  Country: None (occurrence: None)
  Receive Date: 20120809
  Receipt Date: 20120730
  Transmission Date: 20120928
  Serious: Yes (Hospitalization)
  Sender: FDA-Public Use
  Company Number: US-BAYER-2011-105662

PATIENT
  Age: 35 Year
  Sex: Female
  Weight: 88.43 kg

DRUGS (8)
  1. PREDNISONE TAB [Concomitant]
     Indication: ASTHMA
     Dosage: UNK
     Dates: start: 20090901
  2. ALBUTEROL [Concomitant]
     Dosage: UNK UNK, QID
  3. LEXAPRO [Concomitant]
     Indication: DEPRESSION
     Dosage: UNK
     Dates: start: 20080101
  4. AVELOX [Concomitant]
     Dosage: 400 MG, UNK
     Dates: start: 20090928
  5. ERYTHROMYCIN [Concomitant]
     Indication: PERTUSSIS
  6. YAZ [Suspect]
     Indication: PREMENSTRUAL SYNDROME
     Dosage: UNK
     Dates: start: 20080101, end: 20090101
  7. XANAX [Concomitant]
     Indication: ANXIETY
     Dosage: UNK
     Dates: start: 20080101
  8. FLUTICASONE PROPIONATE [Concomitant]
     Dosage: 250/50

REACTIONS (7)
  - INJURY [None]
  - PAIN [None]
  - DEEP VEIN THROMBOSIS [None]
  - DEPRESSION [None]
  - MENTAL DISORDER [None]
  - PULMONARY EMBOLISM [None]
  - ANXIETY [None]
